FAERS Safety Report 4945163-4 (Version None)
Quarter: 2006Q1

REPORT INFORMATION
  Report Type: 
  Country: None (occurrence: None)
  Receive Date: 20060117
  Receipt Date: 20050802
  Transmission Date: 20060701
  Serious: Yes (Hospitalization)
  Sender: FDA-Public Use
  Company Number: A03200502339

PATIENT
  Age: 58 Year
  Sex: Female
  Weight: 68.0396 kg

DRUGS (13)
  1. PLAVIX [Suspect]
     Indication: TRANSIENT ISCHAEMIC ATTACK
     Dosage: 75 MG QD - ORAL
     Route: 048
     Dates: end: 20050518
  2. METHOTREXATE [Concomitant]
  3. LEFLUNOMIDE [Concomitant]
  4. PRAVASTATIN SODIUM [Concomitant]
  5. VALSARTAN [Concomitant]
  6. HYDROCODONE BITARTRATE [Concomitant]
  7. ALPRAZOLAM [Concomitant]
  8. DESLORATADINE [Concomitant]
  9. PREDNISONE [Concomitant]
  10. LANSOPRAZOLE [Concomitant]
  11. ESCITALOPRAM OXALATE [Concomitant]
  12. CELECOXIB [Concomitant]
  13. CALCIUM GLUCONATE [Concomitant]

REACTIONS (2)
  - CEREBRAL INFARCTION [None]
  - THROMBOTIC THROMBOCYTOPENIC PURPURA [None]
